FAERS Safety Report 17162907 (Version 1)
Quarter: 2019Q4

REPORT INFORMATION
  Report Type: Other
  Country: US (occurrence: US)
  Receive Date: 20191217
  Receipt Date: 20191217
  Transmission Date: 20200122
  Serious: Yes (Hospitalization)
  Sender: FDA-Public Use
  Company Number: US-VISTA PHARMACEUTICALS INC.-2077885

PATIENT
  Age: 54 Year
  Sex: Female

DRUGS (2)
  1. ANIMAL THYROID EXTRACT [Concomitant]
     Route: 065
  2. SULFAMETHOXAZOLE AND TRIMETHOPRIM [Suspect]
     Active Substance: SULFAMETHOXAZOLE\TRIMETHOPRIM
     Indication: SINUSITIS
     Route: 065

REACTIONS (2)
  - Primary adrenal insufficiency [Recovering/Resolving]
  - Hyponatraemia [Recovering/Resolving]
